FAERS Safety Report 4602272-7 (Version None)
Quarter: 2005Q1

REPORT INFORMATION
  Report Type: 
  Country: None (occurrence: None)
  Receive Date: 20050201
  Receipt Date: 20040603
  Transmission Date: 20050727
  Serious: Yes (Other)
  Sender: FDA-Public Use
  Company Number: 200418224BWH

PATIENT
  Age: 51 Year
  Sex: Male
  Weight: 120.6568 kg

DRUGS (2)
  1. AVELOX [Suspect]
     Indication: GASTROENTERITIS
     Dosage: 400 MG, ONCE, ORAL
     Route: 048
     Dates: start: 20040517
  2. LEXAPRO [Concomitant]

REACTIONS (4)
  - ANAPHYLACTIC REACTION [None]
  - GENERALISED ERYTHEMA [None]
  - SWELLING [None]
  - URTICARIA [None]
